FAERS Safety Report 5976716-2 (Version None)
Quarter: 2008Q4

REPORT INFORMATION
  Report Type: 
  Country: None (occurrence: None)
  Receive Date: 20081128
  Receipt Date: 20081113
  Transmission Date: 20090506
  Serious: Yes (Hospitalization)
  Sender: FDA-Public Use
  Company Number: 2008US002970

PATIENT
  Age: 55 Year
  Sex: Female

DRUGS (2)
  1. VESICARE [Suspect]
     Indication: URINARY TRACT INFECTION
  2. COPAXONE [Concomitant]

REACTIONS (1)
  - ANAPHYLACTIC REACTION [None]
